FAERS Safety Report 9752975 (Version 1)
Quarter: 2013Q4

REPORT INFORMATION
  Report Type: Spontaneous
  Country: JP (occurrence: JP)
  Receive Date: 20131213
  Receipt Date: 20131213
  Transmission Date: 20140711
  Serious: Yes (Death)
  Sender: FDA-Public Use
  Company Number: JP-SA-2013SA129508

PATIENT
  Age: 60 Year
  Sex: Female

DRUGS (5)
  1. ELPLAT [Suspect]
     Indication: RECTAL CANCER
     Dosage: INFUSION
     Route: 041
  2. CALCIUM LEVOFOLINATE [Concomitant]
  3. 5-FU [Concomitant]
     Route: 040
  4. 5-FU [Concomitant]
     Dosage: CONTINOUS INFUSION
  5. VECTIBIX [Concomitant]

REACTIONS (1)
  - Tumour lysis syndrome [Fatal]
